FAERS Safety Report 12480906 (Version 1)
Quarter: 2016Q2

REPORT INFORMATION
  Report Type: Spontaneous
  Country: US (occurrence: US)
  Receive Date: 20160620
  Receipt Date: 20160620
  Transmission Date: 20160815
  Serious: No
  Sender: FDA-Public Use
  Company Number: US-009507513-1606USA007534

PATIENT
  Sex: Female

DRUGS (1)
  1. ZEPATIER [Suspect]
     Active Substance: ELBASVIR\GRAZOPREVIR
     Indication: CHRONIC HEPATITIS C
     Dosage: 100/50 MG, UNK
     Route: 048
     Dates: start: 20160525

REACTIONS (2)
  - Photosensitivity reaction [Unknown]
  - Insomnia [Unknown]

NARRATIVE: CASE EVENT DATE: 2016
